FAERS Safety Report 18619175 (Version 7)
Quarter: 2025Q1

REPORT INFORMATION
  Report Type: Report from Study
  Country: CA (occurrence: CA)
  Receive Date: 20201215
  Receipt Date: 20250120
  Transmission Date: 20250409
  Serious: Yes (Other)
  Sender: TAKEDA
  Company Number: CA-TAKEDA-2020TUS012939

PATIENT
  Age: 52 Year
  Sex: Male

DRUGS (25)
  1. VEDOLIZUMAB [Suspect]
     Active Substance: VEDOLIZUMAB
     Indication: Crohn^s disease
     Dosage: 300 MILLIGRAM, Q4WEEKS
     Dates: start: 20160818
  2. VEDOLIZUMAB [Suspect]
     Active Substance: VEDOLIZUMAB
     Dosage: 300 MILLIGRAM, Q4WEEKS
  3. VEDOLIZUMAB [Suspect]
     Active Substance: VEDOLIZUMAB
     Dosage: 300 MILLIGRAM, Q4WEEKS
  4. VEDOLIZUMAB [Suspect]
     Active Substance: VEDOLIZUMAB
     Dosage: 300 MILLIGRAM, Q4WEEKS
  5. VEDOLIZUMAB [Suspect]
     Active Substance: VEDOLIZUMAB
     Dosage: 300 MILLIGRAM, Q4WEEKS
  6. VEDOLIZUMAB [Suspect]
     Active Substance: VEDOLIZUMAB
     Dosage: 300 MILLIGRAM, Q4WEEKS
  7. VEDOLIZUMAB [Suspect]
     Active Substance: VEDOLIZUMAB
     Dosage: 300 MILLIGRAM, Q4WEEKS
  8. VEDOLIZUMAB [Suspect]
     Active Substance: VEDOLIZUMAB
     Dosage: 300 MILLIGRAM, Q4WEEKS
  9. MORPHINE [Suspect]
     Active Substance: MORPHINE
     Indication: Nephrolithiasis
  10. GRAVOL [Concomitant]
     Active Substance: DIMENHYDRINATE
  11. IMODIUM [Concomitant]
     Active Substance: LOPERAMIDE HYDROCHLORIDE
  12. ZOLOFT [Concomitant]
     Active Substance: SERTRALINE HYDROCHLORIDE
  13. LORAZEPAM [Concomitant]
     Active Substance: LORAZEPAM
  14. HYDROCHLOROTHIAZIDE [Concomitant]
     Active Substance: HYDROCHLOROTHIAZIDE
  15. GABAPENTIN [Concomitant]
     Active Substance: GABAPENTIN
  16. TERAZOSIN [Concomitant]
     Active Substance: TERAZOSIN HYDROCHLORIDE
  17. B12                                /00056201/ [Concomitant]
  18. PENTASA [Concomitant]
     Active Substance: MESALAMINE
  19. Tylenol with codeine no. 2 [Concomitant]
  20. ATIVAN [Concomitant]
     Active Substance: LORAZEPAM
  21. VIAGRA [Concomitant]
     Active Substance: SILDENAFIL CITRATE
  22. HYDROMORPHONE [Concomitant]
     Active Substance: HYDROMORPHONE
  23. TYLENOL [Concomitant]
     Active Substance: ACETAMINOPHEN
  24. TAMSULOSIN [Concomitant]
     Active Substance: TAMSULOSIN
  25. NAPROXEN [Concomitant]
     Active Substance: NAPROXEN

REACTIONS (5)
  - Nephrolithiasis [Recovered/Resolved]
  - Liver disorder [Unknown]
  - Off label use [Unknown]
  - Bladder disorder [Unknown]
  - Constipation [Unknown]

NARRATIVE: CASE EVENT DATE: 20160818
